FAERS Safety Report 11179903 (Version 1)
Quarter: 2015Q2

REPORT INFORMATION
  Report Type: Spontaneous
  Country: US (occurrence: None)
  Receive Date: 20150609
  Receipt Date: 20150609
  Transmission Date: 20150821
  Serious: Yes (Other)
  Sender: FDA-Public Use
  Company Number: 2015WAT00022

PATIENT
  Age: 63 Year
  Sex: Female
  Weight: 105.2 kg

DRUGS (1)
  1. COUGH SYRUP [Suspect]
     Active Substance: DEXTROMETHORPHAN HYDROBROMIDE\GUAIFENESIN
     Dosage: 2 TSP, ONCE
     Route: 048
     Dates: start: 20150519, end: 20150519

REACTIONS (7)
  - Cough [None]
  - Throat tightness [None]
  - Dysphonia [None]
  - Sinusitis [None]
  - Pharyngeal oedema [None]
  - Oropharyngeal pain [None]
  - Otitis media [None]

NARRATIVE: CASE EVENT DATE: 20150519
